FAERS Safety Report 4525538-8 (Version None)
Quarter: 2004Q4

REPORT INFORMATION
  Report Type: 
  Country: None (occurrence: None)
  Receive Date: 20041116
  Receipt Date: 20040920
  Transmission Date: 20050328
  Serious: No
  Sender: FDA-Public Use
  Company Number: S04-USA-06421-02

PATIENT

DRUGS (2)
  1. NAMENDA [Suspect]
     Dates: start: 20040101, end: 20040101
  2. EXELON [Concomitant]

REACTIONS (1)
  - DIZZINESS [None]
